FAERS Safety Report 9490872 (Version 2)
Quarter: 2013Q3

REPORT INFORMATION
  Report Type: Spontaneous
  Country: US (occurrence: US)
  Receive Date: 20130830
  Receipt Date: 20130919
  Transmission Date: 20140515
  Serious: No
  Sender: FDA-Public Use
  Company Number: US-PFIZER INC-2013246142

PATIENT
  Age: 85 Year
  Sex: Female
  Weight: 77.1 kg

DRUGS (3)
  1. AROMASIN [Suspect]
     Indication: BREAST CANCER FEMALE
     Dosage: 25 MG, 1X/DAY
     Route: 048
     Dates: start: 201103, end: 20130909
  2. PROLIA [Concomitant]
     Indication: OSTEOPENIA
     Dosage: UNK
     Dates: start: 201304
  3. LOSARTAN [Concomitant]
     Indication: HYPERTENSION
     Dosage: UNK, 1X/DAY

REACTIONS (1)
  - Alopecia [Unknown]
